FAERS Safety Report 7555147-8 (Version None)
Quarter: 2011Q2

REPORT INFORMATION
  Report Type: 
  Country: None (occurrence: None)
  Receive Date: 20110617
  Receipt Date: 20110607
  Transmission Date: 20111010
  Serious: Yes (Hospitalization)
  Sender: FDA-Public Use
  Company Number: DE-GILEAD-E2B_00001315

PATIENT
  Sex: Male
  Weight: 96.7 kg

DRUGS (8)
  1. TORSEMIDE [Concomitant]
     Dosage: 15MG TWICE PER DAY
     Route: 045
     Dates: start: 20110402, end: 20110426
  2. METOPROLOL SUCCINATE [Concomitant]
     Dosage: 23.75MG SINGLE DOSE
     Route: 048
     Dates: start: 20110402
  3. EPLERENONE [Concomitant]
     Indication: OEDEMA
     Dosage: 25MG PER DAY
     Route: 048
     Dates: start: 20101001
  4. METOPROLOL SUCCINATE [Concomitant]
     Indication: HYPERTENSION
     Dosage: 47.5MG TWICE PER DAY
     Route: 048
     Dates: start: 20030401, end: 20110303
  5. TORSEMIDE [Concomitant]
     Indication: OEDEMA
     Dosage: 10MG TWICE PER DAY
     Route: 048
     Dates: start: 20030831, end: 20110402
  6. TORSEMIDE [Concomitant]
     Dosage: 20MG TWICE PER DAY
     Route: 048
     Dates: start: 20110427
  7. AMBRISENTAN [Suspect]
     Indication: PULMONARY ARTERIAL HYPERTENSION
     Route: 048
     Dates: start: 20110303
  8. HYDROCHLOROTHIAZID [Concomitant]
     Indication: OEDEMA
     Dosage: 25MG PER DAY
     Route: 048
     Dates: start: 20110224

REACTIONS (1)
  - CARDIAC FAILURE [None]
